FAERS Safety Report 6411542-1 (Version None)
Quarter: 2009Q4

REPORT INFORMATION
  Report Type: 
  Country: None (occurrence: None)
  Receive Date: 20091023
  Receipt Date: 20091015
  Transmission Date: 20100525
  Serious: Yes (Other)
  Sender: FDA-Public Use
  Company Number: BR-ABBOTT-09P-020-0600099-00

PATIENT
  Sex: Female
  Weight: 100 kg

DRUGS (11)
  1. HUMIRA [Suspect]
     Indication: RHEUMATOID ARTHRITIS
     Route: 058
     Dates: start: 20081101
  2. INSULIN [Concomitant]
     Indication: DIABETES MELLITUS
     Dates: start: 20050101
  3. METFORMIN HCL [Concomitant]
     Indication: DIABETES MELLITUS
     Route: 048
     Dates: start: 20050101
  4. LIPLESS [Concomitant]
     Indication: BLOOD TRIGLYCERIDES
     Route: 048
     Dates: start: 20090301
  5. SIMVASTATIN [Concomitant]
     Indication: BLOOD CHOLESTEROL
     Route: 048
     Dates: start: 20090701
  6. FOLIC ACID [Concomitant]
     Indication: ANAEMIA
     Route: 048
     Dates: start: 20050101
  7. AAS [Concomitant]
     Indication: CARDIOVASCULAR EVENT PROPHYLAXIS
     Dates: start: 20040101
  8. CALCIUM [Concomitant]
     Indication: OSTEOPOROSIS
     Route: 048
     Dates: start: 20090101
  9. DIMENHYDRINATE, PYRIDOXINE HYDROCHLORIDE [Concomitant]
     Indication: LABYRINTHITIS
     Dosage: 1/2, 1 IN 3 D
     Dates: start: 20060101
  10. MIRTAX [Concomitant]
     Indication: INSOMNIA
     Route: 048
     Dates: start: 20090801
  11. METHOTREXATE [Concomitant]
     Indication: ARTHRALGIA
     Route: 048
     Dates: start: 20030101

REACTIONS (7)
  - CHEST PAIN [None]
  - DIZZINESS [None]
  - HYPERTENSION [None]
  - ISCHAEMIA [None]
  - RETINAL HAEMORRHAGE [None]
  - SKIN BURNING SENSATION [None]
  - VISUAL ACUITY REDUCED [None]
